FAERS Safety Report 8389601-6 (Version None)
Quarter: 2012Q2

REPORT INFORMATION
  Report Type: 
  Country: None (occurrence: None)
  Receive Date: 20120528
  Receipt Date: 20120524
  Transmission Date: 20120825
  Serious: Yes (Hospitalization)
  Sender: FDA-Public Use
  Company Number: GB-ROCHE-1072162

PATIENT
  Sex: Male
  Weight: 77 kg

DRUGS (3)
  1. MABTHERA [Suspect]
     Indication: PRODUCT USED FOR UNKNOWN INDICATION
     Dosage: DATE OF LAST DOSE PRIOR TO SAE: 06/JUL/2011
     Dates: start: 20100715
  2. STEROIDS NOS [Concomitant]
  3. LEFLUNOMIDE [Concomitant]

REACTIONS (1)
  - CEREBROVASCULAR ACCIDENT [None]
